FAERS Safety Report 9788043 (Version 1)
Quarter: 2013Q4

REPORT INFORMATION
  Report Type: Spontaneous
  Country: US (occurrence: None)
  Receive Date: 20131227
  Receipt Date: 20131227
  Transmission Date: 20140711
  Serious: Yes (Hospitalization)
  Sender: FDA-Public Use
  Company Number: None

PATIENT
  Age: 82 Year
  Sex: Female
  Weight: 74 kg

DRUGS (9)
  1. XARELTO [Suspect]
     Indication: PULMONARY EMBOLISM
     Dosage: RECENT
     Route: 048
  2. VIT D [Concomitant]
  3. SPIRIVA [Concomitant]
  4. PROAIR [Concomitant]
  5. VESICARE [Concomitant]
  6. DIOVAN [Concomitant]
  7. ACTOS [Concomitant]
  8. TOPROL [Concomitant]
  9. TRAZODONE [Concomitant]

REACTIONS (1)
  - Haemorrhage intracranial [None]
